FAERS Safety Report 8194268-6 (Version None)
Quarter: 2012Q1

REPORT INFORMATION
  Report Type: 
  Country: None (occurrence: None)
  Receive Date: 20120308
  Receipt Date: 20120228
  Transmission Date: 20120608
  Serious: Yes (Hospitalization)
  Sender: FDA-Public Use
  Company Number: CA-JNJFOC-20120209136

PATIENT
  Sex: Male
  Weight: 117.5 kg

DRUGS (3)
  1. SYSTEMIC CORTICOSTEROIDS [Suspect]
     Indication: PRODUCT USED FOR UNKNOWN INDICATION
  2. CYCLOSPORINE [Suspect]
     Indication: PRODUCT USED FOR UNKNOWN INDICATION
  3. STELARA [Suspect]
     Indication: PSORIASIS
     Route: 058
     Dates: start: 20110101

REACTIONS (1)
  - CELLULITIS [None]
